FAERS Safety Report 7448342-X (Version None)
Quarter: 2011Q2

REPORT INFORMATION
  Report Type: 
  Country: None (occurrence: None)
  Receive Date: 20110429
  Receipt Date: 20100519
  Transmission Date: 20111010
  Serious: No
  Sender: FDA-Public Use
  Company Number: US-ASTRAZENECA-2010SE23210

PATIENT
  Age: 74 Year
  Sex: Female
  Weight: 66.7 kg

DRUGS (5)
  1. NEXIUM [Suspect]
     Route: 048
     Dates: start: 20100501, end: 20100501
  2. SINGULAIR [Concomitant]
  3. PREDNISONE [Concomitant]
  4. NEXIUM [Suspect]
     Indication: GASTROOESOPHAGEAL REFLUX DISEASE
     Route: 048
  5. ALBUTEROL [Concomitant]

REACTIONS (2)
  - FURUNCLE [None]
  - RASH [None]
